FAERS Safety Report 9382774 (Version 2)
Quarter: 2013Q3

REPORT INFORMATION
  Report Type: Spontaneous
  Country: BR (occurrence: BR)
  Receive Date: 20130703
  Receipt Date: 20130711
  Transmission Date: 20140515
  Serious: Yes (Hospitalization, Other)
  Sender: FDA-Public Use
  Company Number: BR-PFIZER INC-2013196895

PATIENT
  Age: 56 Year
  Sex: Female

DRUGS (2)
  1. OLMETEC HCT [Suspect]
     Dosage: 40MG/  25MG STRENGTH
     Route: 048
     Dates: start: 20070914
  2. NORVASC [Suspect]
     Dosage: 5 MG, 2X/DAY
     Route: 048

REACTIONS (4)
  - Cerebrovascular accident [Unknown]
  - Angiopathy [Unknown]
  - Haemorrhage [Unknown]
  - Emotional disorder [Unknown]
